FAERS Safety Report 4952795-6 (Version None)
Quarter: 2006Q1

REPORT INFORMATION
  Report Type: 
  Country: None (occurrence: None)
  Receive Date: 20060320
  Receipt Date: 20060307
  Transmission Date: 20060701
  Serious: Yes (Hospitalization, Other)
  Sender: FDA-Public Use
  Company Number: 2006033673

PATIENT
  Age: 67 Year
  Sex: Male
  Weight: 94.3482 kg

DRUGS (7)
  1. NEURONTIN [Suspect]
     Indication: NEUROPATHY
     Dosage: 2400 MG (600 MG, 4 IN 1 D)
     Dates: end: 20050901
  2. LYRICA [Suspect]
     Indication: NEUROPATHY
     Dosage: 225 MG (75 MG, 3 IN 1 D)
     Dates: start: 20050901
  3. LASIX [Suspect]
     Indication: CARDIAC FAILURE CONGESTIVE
  4. ATENOLOL [Concomitant]
  5. OMEPRAZOLE [Concomitant]
  6. WARFARIN [Concomitant]
  7. LISINOPRIL [Concomitant]

REACTIONS (10)
  - BLISTER [None]
  - BREAKTHROUGH PAIN [None]
  - CARDIAC FAILURE CONGESTIVE [None]
  - DRUG INEFFECTIVE [None]
  - DYSPNOEA [None]
  - HAEMORRHAGE [None]
  - IMPAIRED HEALING [None]
  - POLLAKIURIA [None]
  - SELF-MEDICATION [None]
  - TREATMENT NONCOMPLIANCE [None]
